APPROVED DRUG PRODUCT: PANTOPRAZOLE SODIUM
Active Ingredient: PANTOPRAZOLE SODIUM
Strength: EQ 40MG BASE/VIAL
Dosage Form/Route: INJECTABLE;INTRAVENOUS
Application: A079197 | Product #001 | TE Code: AP
Applicant: EPIC PHARMA LLC
Approved: Nov 8, 2012 | RLD: No | RS: No | Type: RX